FAERS Safety Report 9425056 (Version 1)
Quarter: 2013Q3

REPORT INFORMATION
  Report Type: Spontaneous
  Country: GB (occurrence: GB)
  Receive Date: 20130729
  Receipt Date: 20130729
  Transmission Date: 20140515
  Serious: Yes (Other)
  Sender: FDA-Public Use
  Company Number: GB-PFIZER INC-2013217853

PATIENT
  Age: 82 Year
  Sex: Female

DRUGS (1)
  1. LYRICA [Suspect]
     Indication: NEURALGIA
     Dosage: 75 MG, UNK

REACTIONS (5)
  - Cardiac failure [Unknown]
  - Respiratory failure [Unknown]
  - Hypoxia [Unknown]
  - Dyspnoea [Unknown]
  - Insomnia [Unknown]
